FAERS Safety Report 6762570-8 (Version None)
Quarter: 2010Q2

REPORT INFORMATION
  Report Type: 
  Country: None (occurrence: None)
  Receive Date: 20100609
  Receipt Date: 20100528
  Transmission Date: 20101027
  Serious: Yes (Hospitalization)
  Sender: FDA-Public Use
  Company Number: IT-PFIZER INC-2010067785

PATIENT
  Sex: Female

DRUGS (1)
  1. DIFLUCAN [Suspect]
     Indication: ONYCHOMYCOSIS
     Dosage: 100 MG

REACTIONS (1)
  - HYPOACUSIS [None]
